FAERS Safety Report 8516495 (Version 5)
Quarter: 2013Q3

REPORT INFORMATION
  Report Type: Spontaneous
  Country: US (occurrence: US)
  Receive Date: 20120417
  Receipt Date: 20130924
  Transmission Date: 20140515
  Serious: Yes (Hospitalization)
  Sender: FDA-Public Use
  Company Number: US-ASTRAZENECA-2011SE41549

PATIENT
  Age: 51 Year
  Sex: Male
  Weight: 102.1 kg

DRUGS (33)
  1. NEXIUM [Suspect]
     Dosage: DAILY
     Route: 048
  2. NEXIUM [Suspect]
     Route: 048
     Dates: start: 20011128
  3. NEXIUM [Suspect]
     Route: 048
     Dates: start: 20020812
  4. NEXIUM [Suspect]
     Route: 048
     Dates: start: 20030429
  5. NEXIUM [Suspect]
     Route: 048
     Dates: start: 200311
  6. NEXIUM [Suspect]
     Dosage: AS NEEDED
     Route: 048
     Dates: start: 2008, end: 2009
  7. PRILOSEC [Suspect]
     Route: 048
  8. PRILOSEC [Suspect]
     Route: 048
     Dates: start: 20000731
  9. LIPITOR [Suspect]
     Route: 065
  10. LIPITOR [Suspect]
     Route: 048
     Dates: start: 20010208
  11. ZEGERID [Suspect]
     Route: 065
  12. ACIPHEX [Suspect]
     Route: 065
  13. ACIPHEX [Suspect]
     Route: 048
     Dates: start: 20031212
  14. NAPROXEN SODIUM [Concomitant]
     Dates: start: 20000828
  15. PENICILLIN VK [Concomitant]
     Dates: start: 20001019
  16. INDOMETHACIN [Concomitant]
     Dates: start: 20010208
  17. DICLOFENAC POT [Concomitant]
     Dates: start: 20011205
  18. METHYLPREDNISOLONE [Concomitant]
     Dates: start: 20020513
  19. FAMOTIDINE [Concomitant]
     Dates: start: 20020812
  20. SUCRALFATE [Concomitant]
     Dates: start: 20020814
  21. NABUMETONE [Concomitant]
     Dates: start: 20020916
  22. PREVPAC [Concomitant]
     Dates: start: 20020927
  23. PREVACID [Concomitant]
  24. ACID PRESCRIPTION MEDICATION [Concomitant]
  25. VITAMIN B12 [Concomitant]
  26. VITAMIN B [Concomitant]
  27. VITAMIN C [Concomitant]
  28. PROMETHAZINE [Concomitant]
     Dates: start: 20060613
  29. ZETIA [Concomitant]
     Dates: start: 20070613
  30. MELOXICAM [Concomitant]
     Dates: start: 20071003
  31. IBUPROFEN [Concomitant]
     Dates: start: 20081003
  32. METHOTREXATE [Concomitant]
     Dates: start: 20090804
  33. METOCLOPRAMIDE [Concomitant]
     Dates: start: 20050504

REACTIONS (13)
  - Limb discomfort [Unknown]
  - Gastric disorder [Unknown]
  - Thrombosis [Unknown]
  - Hiatus hernia [Unknown]
  - Foot fracture [Unknown]
  - Arthropathy [Unknown]
  - Elbow deformity [Unknown]
  - Osteoporosis [Unknown]
  - Multiple fractures [Unknown]
  - Fatigue [Unknown]
  - Heart rate irregular [Unknown]
  - Arthritis [Unknown]
  - Diabetes mellitus [Unknown]
